FAERS Safety Report 14910362 (Version 1)
Quarter: 2018Q2

REPORT INFORMATION
  Report Type: Spontaneous
  Country: US (occurrence: US)
  Receive Date: 20180517
  Receipt Date: 20180517
  Transmission Date: 20180711
  Serious: No
  Sender: FDA-Public Use
  Company Number: US-TEVA-2018-US-893572

PATIENT
  Sex: Female

DRUGS (1)
  1. TEVA CLONAZEPAM [Suspect]
     Active Substance: CLONAZEPAM
     Indication: ANXIETY

REACTIONS (2)
  - Drug ineffective [Unknown]
  - Nightmare [Unknown]
